FAERS Safety Report 6840075-3 (Version None)
Quarter: 2010Q3

REPORT INFORMATION
  Report Type: 
  Country: None (occurrence: None)
  Receive Date: 20100714
  Receipt Date: 20100629
  Transmission Date: 20110219
  Serious: Yes (Other)
  Sender: FDA-Public Use
  Company Number: US-ROCHE-714501

PATIENT

DRUGS (2)
  1. HERCEPTIN [Suspect]
     Indication: PRODUCT USED FOR UNKNOWN INDICATION
     Route: 065
  2. TAXOL [Concomitant]

REACTIONS (5)
  - ANXIETY [None]
  - EJECTION FRACTION DECREASED [None]
  - NAIL DISORDER [None]
  - RHINORRHOEA [None]
  - WEIGHT DECREASED [None]
